FAERS Safety Report 8902724 (Version 1)
Quarter: 2012Q4

REPORT INFORMATION
  Report Type: 
  Country: US (occurrence: US)
  Receive Date: 20121112
  Receipt Date: 20121112
  Transmission Date: 20130627
  Serious: Yes (Other)
  Sender: FDA-Public Use
  Company Number: US-NOVOPROD-363472

PATIENT
  Age: 6 Year
  Sex: Male

DRUGS (1)
  1. NORDITROPIN FLEXPRO [Suspect]
     Indication: DWARFISM
     Dosage: 0.55 mg, qd
     Route: 058

REACTIONS (1)
  - Adenoidectomy [Unknown]
